FAERS Safety Report 9170132 (Version 1)
Quarter: 2013Q1

REPORT INFORMATION
  Report Type: Spontaneous
  Country: US (occurrence: None)
  Receive Date: 20130314
  Receipt Date: 20130314
  Transmission Date: 20140127
  Serious: Yes (Other)
  Sender: FDA-Public Use
  Company Number: None

PATIENT
  Age: 28 Year
  Sex: Female
  Weight: 86.18 kg

DRUGS (2)
  1. LEVOFLOXACIN [Suspect]
     Indication: PYELONEPHRITIS
     Dosage: 750MG ONCE DAILY X5 DAYS PO
     Route: 048
     Dates: start: 20130308, end: 20130310
  2. LEVOFLOXACIN [Suspect]
     Indication: RENAL COLIC
     Dosage: 750MG ONCE DAILY X5 DAYS PO
     Route: 048
     Dates: start: 20130308, end: 20130310

REACTIONS (5)
  - Arthralgia [None]
  - Joint swelling [None]
  - Joint crepitation [None]
  - Arthralgia [None]
  - Tendonitis [None]
